FAERS Safety Report 5818835-7 (Version None)
Quarter: 2008Q3

REPORT INFORMATION
  Report Type: 
  Country: None (occurrence: None)
  Receive Date: 20080718
  Receipt Date: 20080710
  Transmission Date: 20090109
  Serious: Yes (Death, Hospitalization)
  Sender: FDA-Public Use
  Company Number: 163-21880-08070593

PATIENT
  Age: 71 Year
  Sex: Female

DRUGS (4)
  1. REVLIMID [Suspect]
     Indication: MULTIPLE MYELOMA
     Dosage: 5 MG, 1 IN 1 D, ORAL; 10 MG, 1 IN 1 D, ORAL; 15-5MG, DAILY, ORAL; 25-10MG, DAILY, ORAL
     Route: 048
     Dates: start: 20061114, end: 20070701
  2. REVLIMID [Suspect]
     Indication: MULTIPLE MYELOMA
     Dosage: 5 MG, 1 IN 1 D, ORAL; 10 MG, 1 IN 1 D, ORAL; 15-5MG, DAILY, ORAL; 25-10MG, DAILY, ORAL
     Route: 048
     Dates: start: 20070708, end: 20080501
  3. REVLIMID [Suspect]
     Indication: MULTIPLE MYELOMA
     Dosage: 5 MG, 1 IN 1 D, ORAL; 10 MG, 1 IN 1 D, ORAL; 15-5MG, DAILY, ORAL; 25-10MG, DAILY, ORAL
     Route: 048
     Dates: start: 20080519, end: 20080601
  4. REVLIMID [Suspect]
     Indication: MULTIPLE MYELOMA
     Dosage: 5 MG, 1 IN 1 D, ORAL; 10 MG, 1 IN 1 D, ORAL; 15-5MG, DAILY, ORAL; 25-10MG, DAILY, ORAL
     Route: 048
     Dates: start: 20080618, end: 20080601

REACTIONS (1)
  - DEATH [None]
